FAERS Safety Report 17306548 (Version 2)
Quarter: 2020Q1

REPORT INFORMATION
  Report Type: Spontaneous
  Country: IE (occurrence: IE)
  Receive Date: 20200123
  Receipt Date: 20200309
  Transmission Date: 20200409
  Serious: Yes (Hospitalization)
  Sender: FDA-Public Use
  Company Number: IE-PFIZER INC-2020026403

PATIENT
  Age: 50 Year
  Sex: Male

DRUGS (21)
  1. METHADONE HYDROCHLORIDE. [Suspect]
     Active Substance: METHADONE HYDROCHLORIDE
     Dosage: 100 MG, 2X/DAY
  2. METHADONE HYDROCHLORIDE. [Suspect]
     Active Substance: METHADONE HYDROCHLORIDE
     Dosage: 20 MG, 2X/DAY
  3. KETAMINE HCL [Suspect]
     Active Substance: KETAMINE HYDROCHLORIDE
     Indication: PAIN
     Dosage: 45 MG, 3X/DAY
  4. AMITRIPTYLINE [Suspect]
     Active Substance: AMITRIPTYLINE
     Dosage: 100 MG, 1X/DAY (IN THE EVENING)
  5. METHADONE HYDROCHLORIDE. [Suspect]
     Active Substance: METHADONE HYDROCHLORIDE
     Indication: PAIN
     Dosage: 70 MG, 2X/DAY
  6. KETAMINE HCL [Suspect]
     Active Substance: KETAMINE HYDROCHLORIDE
     Dosage: UNK (FROM A SINGLE IV DOSE OF 600 MCG/KG TO 100 MG/24 HOURS IV INFUSION)
     Route: 042
  7. AMITRIPTYLINE [Suspect]
     Active Substance: AMITRIPTYLINE
     Indication: PAIN
     Dosage: 10 MG, 1X/DAY (IN THE EVENING)
  8. AMITRIPTYLINE [Suspect]
     Active Substance: AMITRIPTYLINE
     Dosage: 10 MG, 1X/DAY (IN THE EVENING)
  9. OXYCODONE [Suspect]
     Active Substance: OXYCODONE
     Dosage: 120 MG, 2X/DAY
  10. AMITRIPTYLINE [Suspect]
     Active Substance: AMITRIPTYLINE
     Dosage: 25 MG, 1X/DAY (IN THE EVENING)
  11. DULOXETINE. [Suspect]
     Active Substance: DULOXETINE
     Dosage: 90 MG, DAILY (60MG IN THE MORNING, 30MG IN THE AFTERNOON)
  12. HALOPERIDOL. [Suspect]
     Active Substance: HALOPERIDOL
     Indication: HALLUCINATION
     Dosage: UNK
  13. PREGABALIN. [Suspect]
     Active Substance: PREGABALIN
     Indication: PAIN
     Dosage: 300 MG, 2X/DAY
  14. CLONAZEPAM. [Suspect]
     Active Substance: CLONAZEPAM
     Indication: PAIN
     Dosage: UNK (CLONAZEPAM 0.5 MG MANE AND 1 MG TARDE)
  15. DULOXETINE. [Suspect]
     Active Substance: DULOXETINE
     Indication: PAIN
     Dosage: 60 MG, DAILY
  16. OXYCODONE [Suspect]
     Active Substance: OXYCODONE
     Indication: PAIN
     Dosage: 210 MG, 2X/DAY
  17. KETAMINE [Suspect]
     Active Substance: KETAMINE
     Indication: PAIN
     Dosage: 100 MG, DAILY (TITRATING RAPIDLY FROM 100 MG TO 500 MG/24 HOURS)
     Route: 058
  18. OXYCODONE [Suspect]
     Active Substance: OXYCODONE
     Dosage: 70 MG, 2X/DAY
  19. DULOXETINE. [Suspect]
     Active Substance: DULOXETINE
     Dosage: 90 MG, DAILY (60 MG IN THE MORNING + 30MG IN THE EVENING)
  20. KETAMINE [Suspect]
     Active Substance: KETAMINE
     Dosage: 10 MG, 3X/DAY (TITRATED UPWARDS BY 10 MG TDS EVERY 3 DAYS TO 40 MG TDS)
     Route: 048
  21. METHADONE HYDROCHLORIDE. [Suspect]
     Active Substance: METHADONE HYDROCHLORIDE
     Dosage: 220 MG, 2X/DAY

REACTIONS (4)
  - Hallucination [Unknown]
  - Drug ineffective [Recovered/Resolved]
  - Abnormal dreams [Unknown]
  - Toxicity to various agents [Unknown]
